FAERS Safety Report 7349523-6 (Version None)
Quarter: 2011Q1

REPORT INFORMATION
  Report Type: 
  Country: None (occurrence: None)
  Receive Date: 20110314
  Receipt Date: 20101228
  Transmission Date: 20110831
  Serious: No
  Sender: FDA-Public Use
  Company Number: US-ABBOTT-11P-163-0694627-00

PATIENT
  Sex: Male

DRUGS (4)
  1. DEPAKOTE [Suspect]
     Indication: AFFECTIVE DISORDER
     Dosage: 1 IN 12 HOURS, STARTED W/SAMPLE THEN RX
     Route: 048
     Dates: start: 20101130, end: 20101228
  2. DOXEPIN [Concomitant]
     Indication: AFFECTIVE DISORDER
     Dosage: AT HOUR OF SLEEP, PRN
     Dates: start: 20101130
  3. CELEXA [Concomitant]
     Indication: PRODUCT USED FOR UNKNOWN INDICATION
     Dosage: DAILY IN AM
  4. RISPERDAL [Concomitant]
     Indication: PRODUCT USED FOR UNKNOWN INDICATION
     Dosage: AT HOUR OF SLEEP

REACTIONS (2)
  - DEPRESSION [None]
  - NAUSEA [None]
